FAERS Safety Report 9055130 (Version 1)
Quarter: 2013Q1

REPORT INFORMATION
  Report Type: Spontaneous
  Country: AT (occurrence: AT)
  Receive Date: 20130206
  Receipt Date: 20130206
  Transmission Date: 20140127
  Serious: Yes (Hospitalization, Other)
  Sender: FDA-Public Use
  Company Number: AT-JNJFOC-20130112916

PATIENT
  Age: 30 None
  Sex: Male
  Weight: 66 kg

DRUGS (7)
  1. XEPLION [Suspect]
     Indication: SCHIZOPHRENIA, PARANOID TYPE
     Route: 030
     Dates: start: 20121204
  2. XEPLION [Suspect]
     Indication: SCHIZOPHRENIA, PARANOID TYPE
     Route: 030
     Dates: start: 20121126
  3. TEMESTA [Concomitant]
     Route: 065
  4. HALDOL [Concomitant]
     Route: 065
  5. GEWACALM [Concomitant]
     Route: 042
  6. RISPERDAL QUICKLET [Concomitant]
     Route: 065
     Dates: start: 20121121, end: 20121128
  7. AKINETON [Concomitant]
     Route: 065
     Dates: start: 20121206

REACTIONS (3)
  - Extrapyramidal disorder [Recovered/Resolved]
  - Depression [Unknown]
  - Anxiety [Unknown]
